FAERS Safety Report 6137771-2 (Version None)
Quarter: 2009Q1

REPORT INFORMATION
  Report Type: 
  Country: None (occurrence: None)
  Receive Date: 20090331
  Receipt Date: 20090323
  Transmission Date: 20090719
  Serious: Yes (Life-Threatening)
  Sender: FDA-Public Use
  Company Number: ZM-AVENTIS-200912908GDDC

PATIENT
  Age: 35 Year
  Sex: Male
  Weight: 54.6 kg

DRUGS (5)
  1. RIFAMPICIN [Suspect]
     Indication: TUBERCULOSIS
     Dates: start: 20090109
  2. CODE UNBROKEN [Suspect]
     Indication: TUBERCULOSIS
     Dates: start: 20090109
  3. PYRAZINAMIDE [Suspect]
     Indication: TUBERCULOSIS
     Dates: start: 20090109
  4. CODE UNBROKEN [Suspect]
     Dates: start: 20090109
  5. CODE UNBROKEN [Suspect]
     Dates: start: 20090109

REACTIONS (2)
  - GUILLAIN-BARRE SYNDROME [None]
  - PNEUMONIA ASPIRATION [None]
